FAERS Safety Report 17925062 (Version 5)
Quarter: 2024Q1

REPORT INFORMATION
  Report Type: Report from Study
  Country: FR (occurrence: FR)
  Receive Date: 20200622
  Receipt Date: 20240319
  Transmission Date: 20240410
  Serious: Yes (Death, Hospitalization)
  Sender: FDA-Public Use
  Company Number: FR-PFIZER INC-2020238576

PATIENT
  Age: 80 Year
  Sex: Male

DRUGS (14)
  1. LEVOFLOXACIN [Suspect]
     Active Substance: LEVOFLOXACIN
     Indication: Acinetobacter infection
     Dosage: UNK
     Dates: start: 202001
  2. LEVOFLOXACIN [Suspect]
     Active Substance: LEVOFLOXACIN
     Indication: COVID-19
  3. MEROPENEM [Suspect]
     Active Substance: MEROPENEM
     Indication: Acinetobacter infection
     Dosage: UNK
     Dates: start: 202001
  4. MEROPENEM [Suspect]
     Active Substance: MEROPENEM
     Indication: COVID-19
  5. TIGECYCLINE [Suspect]
     Active Substance: TIGECYCLINE
     Indication: Acinetobacter infection
     Dosage: UNK
     Dates: start: 202001
  6. TIGECYCLINE [Suspect]
     Active Substance: TIGECYCLINE
     Indication: COVID-19
  7. ISAVUCONAZONIUM SULFATE [Suspect]
     Active Substance: ISAVUCONAZONIUM SULFATE
     Indication: Aspergillus infection
     Dosage: UNK
     Dates: start: 202001
  8. ISAVUCONAZONIUM SULFATE [Suspect]
     Active Substance: ISAVUCONAZONIUM SULFATE
     Indication: COVID-19
  9. REMDESIVIR [Suspect]
     Active Substance: REMDESIVIR
     Indication: COVID-19
     Dosage: 200 MG
     Route: 042
     Dates: start: 202001, end: 20200130
  10. REMDESIVIR [Suspect]
     Active Substance: REMDESIVIR
     Indication: Acinetobacter infection
  11. REMDESIVIR [Suspect]
     Active Substance: REMDESIVIR
     Indication: Aspergillus infection
  12. COLISTIN SULFATE [Suspect]
     Active Substance: COLISTIN SULFATE
     Indication: Acinetobacter infection
     Dosage: UNK
     Dates: start: 202001
  13. COLISTIN SULFATE [Suspect]
     Active Substance: COLISTIN SULFATE
     Indication: COVID-19
  14. VORICONAZOLE [Concomitant]
     Active Substance: VORICONAZOLE
     Indication: Aspergillus infection
     Dosage: UNK
     Dates: start: 202001

REACTIONS (2)
  - Drug ineffective for unapproved indication [Fatal]
  - Off label use [Fatal]

NARRATIVE: CASE EVENT DATE: 20200101
